FAERS Safety Report 16948791 (Version 2)
Quarter: 2019Q4

REPORT INFORMATION
  Report Type: Spontaneous
  Country: US (occurrence: US)
  Receive Date: 20191023
  Receipt Date: 20191025
  Transmission Date: 20200122
  Serious: Yes (Death)
  Sender: FDA-Public Use
  Company Number: US-PURDUE-USA-2019-0148556

PATIENT
  Sex: Female

DRUGS (1)
  1. OXYCONTIN [Suspect]
     Active Substance: OXYCODONE HYDROCHLORIDE
     Indication: PAIN
     Dosage: 10 MG, UNK
     Route: 048
     Dates: start: 20190930

REACTIONS (5)
  - Death [Fatal]
  - Product residue present [Unknown]
  - Abnormal faeces [Unknown]
  - Underdose [Unknown]
  - Constipation [Unknown]

NARRATIVE: CASE EVENT DATE: 20190930
